FAERS Safety Report 18159879 (Version 1)
Quarter: 2020Q3

REPORT INFORMATION
  Report Type: Spontaneous
  Country: US (occurrence: US)
  Receive Date: 20200818
  Receipt Date: 20200818
  Transmission Date: 20201103
  Serious: No
  Sender: FDA-Public Use
  Company Number: US-CELLTRION INC.-2020US023375

PATIENT

DRUGS (12)
  1. RITUXIMAB (UNKNOWN) [Suspect]
     Active Substance: RITUXIMAB
     Dosage: 4 DOSES INITIALLY,THE  ADDITIONAL 2 DOSES
     Route: 065
  2. RITUXIMAB (UNKNOWN) [Suspect]
     Active Substance: RITUXIMAB
     Dosage: 4 DOSES INITIALLY,THE  ADDITIONAL 2 DOSES
     Route: 065
  3. DEXAMETHASONE. [Concomitant]
     Active Substance: DEXAMETHASONE
     Indication: PREMEDICATION
     Dosage: 20 MILLIGRAM TAKEN PRIOR EACH BORTEZOMIB TREATMENT
  4. RITUXIMAB (UNKNOWN) [Suspect]
     Active Substance: RITUXIMAB
     Dosage: 4 DOSES INITIALLY,THE  ADDITIONAL 2 DOSES
     Route: 065
  5. MYCOPHENOLATE [Suspect]
     Active Substance: MYCOPHENOLIC ACID
     Indication: C3 GLOMERULOPATHY
     Dosage: 750 MILLIGRAM, BID
     Route: 065
  6. MYCOPHENOLATE [Suspect]
     Active Substance: MYCOPHENOLIC ACID
     Dosage: RESTARTED
     Route: 065
  7. RITUXIMAB (UNKNOWN) [Suspect]
     Active Substance: RITUXIMAB
     Dosage: 4 DOSES INITIALLY,THE  ADDITIONAL 2 DOSES
     Route: 065
  8. RITUXIMAB (UNKNOWN) [Suspect]
     Active Substance: RITUXIMAB
     Indication: C3 GLOMERULOPATHY
     Dosage: 4 DOSES INITIALLY,THE  ADDITIONAL 2 DOSES
     Route: 065
  9. BORTEZOMIB. [Suspect]
     Active Substance: BORTEZOMIB
     Indication: C3 GLOMERULOPATHY
     Dosage: 1.6 MILLIGRAM, TWICE WEEKLY FOR 2 WEEKS
     Route: 065
  10. PREDNISONE. [Suspect]
     Active Substance: PREDNISONE
     Indication: C3 GLOMERULOPATHY
     Dosage: 20 MILLIGRAM, EVERY OTHER DAY
     Route: 065
  11. ECULIZUMAB [Suspect]
     Active Substance: ECULIZUMAB
     Indication: C3 GLOMERULOPATHY
     Route: 065
  12. RITUXIMAB (UNKNOWN) [Suspect]
     Active Substance: RITUXIMAB
     Dosage: 4 DOSES INITIALLY,THE  ADDITIONAL 2 DOSES
     Route: 065

REACTIONS (1)
  - Off label use [Unknown]
